FAERS Safety Report 7098155-6 (Version None)
Quarter: 2010Q4

REPORT INFORMATION
  Report Type: 
  Country: None (occurrence: None)
  Receive Date: 20101112
  Receipt Date: 20101102
  Transmission Date: 20110411
  Serious: Yes (Other)
  Sender: FDA-Public Use
  Company Number: GB-NOVOPROD-312037

PATIENT
  Age: 69 Year
  Sex: Male
  Weight: 87.982 kg

DRUGS (2)
  1. VICTOZA [Suspect]
     Indication: TYPE 2 DIABETES MELLITUS
     Dosage: 1.2 MG, QD
     Route: 058
     Dates: start: 20100519
  2. METFORMIN [Suspect]
     Indication: TYPE 2 DIABETES MELLITUS
     Dosage: 500 MG, QID
     Dates: start: 20080225, end: 20100728

REACTIONS (3)
  - DRUG INTERACTION [None]
  - DYSPNOEA [None]
  - TENSION HEADACHE [None]
